FAERS Safety Report 5110388-4 (Version None)
Quarter: 2006Q3

REPORT INFORMATION
  Report Type: 
  Country: None (occurrence: None)
  Receive Date: 20060921
  Receipt Date: 20060822
  Transmission Date: 20061208
  Serious: Yes (Death, Life-Threatening, Hospitalization)
  Sender: FDA-Public Use
  Company Number: FR-BRISTOL-MYERS SQUIBB COMPANY-13491121

PATIENT
  Age: 13 Year
  Sex: Male

DRUGS (3)
  1. CORGARD [Suspect]
     Indication: VENTRICULAR TACHYCARDIA
     Route: 048
     Dates: start: 20000101, end: 20060726
  2. BISOPROLOL FUMARATE [Suspect]
     Indication: VENTRICULAR TACHYCARDIA
     Dosage: DURATION OF THERAPY:  ^A FEW DAYS^
     Route: 048
     Dates: start: 20060726, end: 20060802
  3. BISOPROLOL FUMARATE [Suspect]
     Indication: LONG QT SYNDROME CONGENITAL
     Dosage: DURATION OF THERAPY:  ^A FEW DAYS^
     Route: 048
     Dates: start: 20060726, end: 20060802

REACTIONS (7)
  - ANOXIA [None]
  - BRAIN OEDEMA [None]
  - CARDIAC ARREST [None]
  - COMA [None]
  - CONVULSION [None]
  - RESPIRATORY ARREST [None]
  - VENTRICULAR TACHYCARDIA [None]
